FAERS Safety Report 6133710-9 (Version None)
Quarter: 2009Q1

REPORT INFORMATION
  Report Type: 
  Country: None (occurrence: None)
  Receive Date: 20090326
  Receipt Date: 20090320
  Transmission Date: 20090719
  Serious: Yes (Other)
  Sender: FDA-Public Use
  Company Number: B0566371A

PATIENT
  Age: 41 Year
  Sex: Female

DRUGS (6)
  1. TELZIR [Suspect]
     Indication: HIV INFECTION
     Route: 048
  2. ZIAGEN [Suspect]
     Indication: HIV INFECTION
     Route: 048
  3. KIVEXA [Suspect]
     Indication: HIV INFECTION
     Route: 048
  4. NORVIR [Suspect]
     Indication: HIV INFECTION
     Route: 048
     Dates: end: 20051228
  5. VIDEX [Suspect]
     Indication: HIV INFECTION
     Route: 048
  6. INVIRASE [Suspect]
     Indication: HIV INFECTION
     Route: 048

REACTIONS (2)
  - HEPATOTOXICITY [None]
  - SKIN DISORDER [None]
